FAERS Safety Report 6652558-X (Version None)
Quarter: 2010Q1

REPORT INFORMATION
  Report Type: 
  Country: None (occurrence: None)
  Receive Date: 20100325
  Receipt Date: 20100311
  Transmission Date: 20100710
  Serious: Yes (Life-Threatening)
  Sender: FDA-Public Use
  Company Number: PL-MYLANLABS-2010S1004081

PATIENT
  Age: 45 Year
  Sex: Male

DRUGS (6)
  1. SOTALOL HCL [Suspect]
     Indication: VENTRICULAR ARRHYTHMIA
     Route: 065
  2. PROPAFENONE HCL [Suspect]
     Indication: VENTRICULAR ARRHYTHMIA
     Dosage: 3 X 150MG
     Route: 065
  3. ATORVASTATIN CALCIUM [Concomitant]
     Dosage: ATORVASTATIN 20MG AT NIGHT
     Route: 065
  4. ASPIRIN [Concomitant]
     Dosage: CARDIAC DOSE
     Route: 065
  5. MAGNESIUM [Concomitant]
     Route: 065
  6. POTASSIUM [Concomitant]
     Route: 065

REACTIONS (1)
  - CARDIOGENIC SHOCK [None]
